FAERS Safety Report 8394342-5 (Version None)
Quarter: 2012Q2

REPORT INFORMATION
  Report Type: 
  Country: None (occurrence: None)
  Receive Date: 20120530
  Receipt Date: 20120521
  Transmission Date: 20120825
  Serious: Yes (Hospitalization, Other)
  Sender: FDA-Public Use
  Company Number: US-JNJFOC-20110904224

PATIENT
  Sex: Male

DRUGS (7)
  1. LEVAQUIN [Suspect]
     Route: 048
  2. HYDROCHLOROTHIAZIDE [Concomitant]
     Indication: HYPERTENSION
     Route: 065
  3. LEVAQUIN [Suspect]
     Route: 048
  4. VANCOMYCIN [Suspect]
     Indication: POSTOPERATIVE WOUND INFECTION
     Route: 065
  5. LEVAQUIN [Suspect]
     Indication: PROSTATITIS
     Route: 048
     Dates: start: 20050901
  6. LOSARTAN POTASSIUM [Concomitant]
     Indication: HYPERTENSION
     Route: 065
  7. LEVAQUIN [Suspect]
     Indication: SINUSITIS
     Route: 048
     Dates: start: 20050901

REACTIONS (4)
  - TENDON RUPTURE [None]
  - HERPES ZOSTER [None]
  - PLANTAR FASCIITIS [None]
  - FOOT DEFORMITY [None]
